FAERS Safety Report 16104487 (Version 1)
Quarter: 2019Q1

REPORT INFORMATION
  Report Type: Spontaneous
  Country: US (occurrence: US)
  Receive Date: 20190322
  Receipt Date: 20190322
  Transmission Date: 20190418
  Serious: Yes (Other)
  Sender: FDA-Public Use
  Company Number: US-TEVA-2019-US-1028992

PATIENT
  Sex: Male

DRUGS (1)
  1. TESTOSTERONE PATCHES [Suspect]
     Active Substance: TESTOSTERONE
     Route: 062

REACTIONS (1)
  - Leg amputation [Unknown]
